FAERS Safety Report 8581950-1 (Version None)
Quarter: 2012Q3

REPORT INFORMATION
  Report Type: 
  Country: None (occurrence: None)
  Receive Date: 20120727
  Receipt Date: 20120716
  Transmission Date: 20120928
  Serious: Yes (Hospitalization)
  Sender: FDA-Public Use
  Company Number: 1358743

PATIENT
  Age: 60 Year
  Sex: Female

DRUGS (2)
  1. (TRIENTINE) [Suspect]
     Indication: OVARIAN CANCER
     Dosage: 500 MG 4 TIMES A DAY, ORAL
     Route: 048
  2. CARBOPLATIN [Suspect]
     Indication: OVARIAN CANCER
     Dosage: INTRAVENOUS DRIP
     Route: 041

REACTIONS (1)
  - SIDEROBLASTIC ANAEMIA [None]
